FAERS Safety Report 7270856-6 (Version None)
Quarter: 2011Q1

REPORT INFORMATION
  Report Type: 
  Country: None (occurrence: None)
  Receive Date: 20110202
  Receipt Date: 20110124
  Transmission Date: 20110831
  Serious: Yes (Hospitalization)
  Sender: FDA-Public Use
  Company Number: US-ASTRAZENECA-2011SE04121

PATIENT
  Age: 42 Year
  Sex: Male
  Weight: 113.4 kg

DRUGS (13)
  1. CARVEDILOL [Concomitant]
  2. SIMVASTATIN [Concomitant]
  3. LISINOPRIL [Concomitant]
  4. METHOCARBEMOL [Concomitant]
  5. SEROQUEL [Suspect]
     Indication: BIPOLAR DISORDER
     Route: 048
  6. ESOMEPRAZOLE [Concomitant]
  7. MELOXICAM [Concomitant]
  8. OXCARBAZEPINE [Concomitant]
  9. SEROQUEL [Suspect]
     Dosage: TAKING HALF HIS DOSE
     Route: 048
  10. VENLAFAXINE [Concomitant]
  11. HYDRO OXYZINE PAM [Concomitant]
  12. NABUMETONE [Concomitant]
  13. HYDROCODONE [Concomitant]

REACTIONS (10)
  - NAUSEA [None]
  - PARAMNESIA [None]
  - CHEST PAIN [None]
  - THERAPY REGIMEN CHANGED [None]
  - CARDIAC DISORDER [None]
  - ABDOMINAL PAIN UPPER [None]
  - MALAISE [None]
  - WEIGHT DECREASED [None]
  - JOINT SPRAIN [None]
  - SLUGGISHNESS [None]
